FAERS Safety Report 14561373 (Version 5)
Quarter: 2022Q4

REPORT INFORMATION
  Report Type: Spontaneous
  Country: US (occurrence: US)
  Receive Date: 20180222
  Receipt Date: 20221122
  Transmission Date: 20230113
  Serious: Yes (Hospitalization, Other)
  Sender: FDA-Public Use
  Company Number: US-PFIZER INC-2018074735

PATIENT
  Age: 72 Year
  Sex: Female
  Weight: 81.65 kg

DRUGS (3)
  1. XELJANZ XR [Suspect]
     Active Substance: TOFACITINIB CITRATE
     Indication: Rheumatoid arthritis
     Dosage: 11 MG, 1X/DAY
     Route: 048
     Dates: end: 202211
  2. METFORMIN [Concomitant]
     Active Substance: METFORMIN HYDROCHLORIDE
     Dosage: 500 MG, 2X/DAY
     Route: 048
     Dates: start: 20221105
  3. IRON [Concomitant]
     Active Substance: IRON
     Indication: Blood iron decreased
     Dosage: 325 MG, 1X/DAY
     Route: 048
     Dates: start: 202211

REACTIONS (5)
  - Pulmonary embolism [Unknown]
  - Atrial fibrillation [Unknown]
  - Deep vein thrombosis [Recovering/Resolving]
  - Skin cancer [Unknown]
  - Pain in extremity [Unknown]

NARRATIVE: CASE EVENT DATE: 20221106
